FAERS Safety Report 9479050 (Version 3)
Quarter: 2013Q4

REPORT INFORMATION
  Report Type: Report from Study
  Country: CA (occurrence: CA)
  Receive Date: 20130827
  Receipt Date: 20131016
  Transmission Date: 20140711
  Serious: Yes (Other)
  Sender: FDA-Public Use
  Company Number: CA-ROCHE-1266603

PATIENT
  Sex: Female
  Weight: 74 kg

DRUGS (12)
  1. ACTEMRA [Suspect]
     Indication: RHEUMATOID ARTHRITIS
     Route: 042
     Dates: start: 20120424
  2. ACTEMRA [Suspect]
     Route: 042
     Dates: start: 20130815
  3. ACTEMRA [Suspect]
     Route: 042
     Dates: start: 20131008
  4. RITUXAN [Suspect]
     Indication: RHEUMATOID ARTHRITIS
     Route: 042
     Dates: start: 20110707, end: 20110721
  5. NAPROXEN [Concomitant]
     Route: 065
  6. FOLIC ACID [Concomitant]
  7. METHOTREXATE [Concomitant]
  8. CORTISONE [Concomitant]
  9. TYLENOL [Concomitant]
  10. DIPHENHYDRAMINE HCL [Concomitant]
     Route: 048
     Dates: start: 20110707, end: 20110721
  11. ACETAMINOPHEN [Concomitant]
     Route: 048
     Dates: start: 20110707, end: 20110721
  12. METHYLPREDNISOLONE [Concomitant]
     Route: 042
     Dates: start: 20130707, end: 20130721

REACTIONS (3)
  - White blood cell count decreased [Recovering/Resolving]
  - Weight decreased [Not Recovered/Not Resolved]
  - Pain [Not Recovered/Not Resolved]
